FAERS Safety Report 5203528-X (Version None)
Quarter: 2007Q1

REPORT INFORMATION
  Report Type: 
  Country: None (occurrence: None)
  Receive Date: 20070110
  Receipt Date: 20070103
  Transmission Date: 20070707
  Serious: Yes (Other)
  Sender: FDA-Public Use
  Company Number: IE-GLAXOSMITHKLINE-B0445553A

PATIENT
  Age: 27 Year
  Sex: Female

DRUGS (3)
  1. NIQUITIN CQ PATCH [Suspect]
     Route: 062
     Dates: start: 20061101
  2. AUGMENTIN '125' [Concomitant]
     Dosage: 1TAB TWICE PER DAY
     Route: 048
     Dates: start: 20061101, end: 20061105
  3. DELTACORTRIL [Concomitant]
     Dosage: 30MG PER DAY
     Route: 048
     Dates: start: 20061101, end: 20061103

REACTIONS (3)
  - INSOMNIA [None]
  - PALPITATIONS [None]
  - SOMNOLENCE [None]
